FAERS Safety Report 6690457-8 (Version None)
Quarter: 2010Q2

REPORT INFORMATION
  Report Type: 
  Country: None (occurrence: None)
  Receive Date: 20100419
  Receipt Date: 20100419
  Transmission Date: 20101027
  Serious: Yes (Life-Threatening, Hospitalization)
  Sender: FDA-Public Use
  Company Number: None

PATIENT
  Age: 56 Year
  Sex: Male
  Weight: 87.5442 kg

DRUGS (7)
  1. FLECTOR [Suspect]
     Indication: BONE DISORDER
     Dosage: TRANSDERMAL
     Dates: start: 20100319
  2. ALEVE (CAPLET) [Suspect]
     Dosage: PO
     Route: 048
     Dates: end: 20100401
  3. VIT C [Concomitant]
  4. MULTI VIT [Concomitant]
  5. GLUCOSAMINE CHONDROITIN [Concomitant]
  6. LIPITOR [Concomitant]
  7. NASONEX [Concomitant]

REACTIONS (1)
  - ULCER HAEMORRHAGE [None]
